FAERS Safety Report 5507715-2 (Version None)
Quarter: 2007Q4

REPORT INFORMATION
  Report Type: 
  Country: None (occurrence: None)
  Receive Date: 20071106
  Receipt Date: 20071105
  Transmission Date: 20080405
  Serious: Yes (Hospitalization)
  Sender: FDA-Public Use
  Company Number: A0691426A

PATIENT
  Age: 65 Year
  Sex: Female

DRUGS (13)
  1. ALLI [Suspect]
     Dates: start: 20070728, end: 20070928
  2. GLUCOPHAGE [Concomitant]
  3. LISINOPRIL [Concomitant]
  4. ATENOLOL [Concomitant]
  5. TRICOR [Concomitant]
  6. ACTOS [Concomitant]
  7. LEXAPRO [Concomitant]
  8. LORAZEPAM [Concomitant]
  9. SYNTHROID [Concomitant]
  10. NEXIUM [Concomitant]
  11. TRAZODONE HCL [Concomitant]
  12. TRAMADOL HCL [Concomitant]
  13. INSULIN [Concomitant]

REACTIONS (5)
  - ABDOMINAL PAIN [None]
  - BLOOD GLUCOSE INCREASED [None]
  - CONSTIPATION [None]
  - DIVERTICULITIS [None]
  - THERAPEUTIC RESPONSE UNEXPECTED [None]
